FAERS Safety Report 9633929 (Version 3)
Quarter: 2014Q3

REPORT INFORMATION
  Report Type: Report from Study
  Country: FR (occurrence: FR)
  Receive Date: 20131021
  Receipt Date: 20140901
  Transmission Date: 20150326
  Serious: Yes (Hospitalization)
  Sender: FDA-Public Use
  Company Number: FR-ROCHE-1217095

PATIENT
  Age: 36 Year
  Sex: Female

DRUGS (19)
  1. TOCILIZUMAB [Suspect]
     Active Substance: TOCILIZUMAB
     Dosage: 8 MG/KG
     Route: 041
     Dates: start: 20120410
  2. INEXIUM [Concomitant]
     Active Substance: ESOMEPRAZOLE
  3. AERIUS [Concomitant]
     Active Substance: DESLORATADINE
  4. TOCILIZUMAB [Suspect]
     Active Substance: TOCILIZUMAB
     Indication: RHEUMATOID ARTHRITIS
     Dosage: 8.5 MG/KG
     Route: 041
     Dates: start: 20110415, end: 20120410
  5. TOCILIZUMAB [Suspect]
     Active Substance: TOCILIZUMAB
     Route: 042
     Dates: start: 20120109
  6. TOCILIZUMAB [Suspect]
     Active Substance: TOCILIZUMAB
     Dosage: 7.94MG/KG
     Route: 042
     Dates: start: 20120312
  7. TOCILIZUMAB [Suspect]
     Active Substance: TOCILIZUMAB
     Route: 042
     Dates: start: 20110706
  8. TOCILIZUMAB [Suspect]
     Active Substance: TOCILIZUMAB
     Route: 042
     Dates: start: 20111107
  9. FORADIL [Concomitant]
     Active Substance: FORMOTEROL FUMARATE
  10. TOCILIZUMAB [Suspect]
     Active Substance: TOCILIZUMAB
     Dosage: 7.55 MG/KG
     Route: 042
     Dates: start: 20110907
  11. CELEBREX [Concomitant]
     Active Substance: CELECOXIB
  12. ALLERGODIL [Concomitant]
     Active Substance: AZELASTINE
  13. TOCILIZUMAB [Suspect]
     Active Substance: TOCILIZUMAB
     Dosage: 7.8 MG/KG
     Route: 042
     Dates: start: 20110805
  14. TOCILIZUMAB [Suspect]
     Active Substance: TOCILIZUMAB
     Route: 042
     Dates: start: 20111005
  15. TOCILIZUMAB [Suspect]
     Active Substance: TOCILIZUMAB
     Route: 042
     Dates: start: 20120206
  16. DAFALGAN [Concomitant]
     Active Substance: ACETAMINOPHEN
  17. TOCILIZUMAB [Suspect]
     Active Substance: TOCILIZUMAB
     Route: 042
     Dates: start: 20110513
  18. TOCILIZUMAB [Suspect]
     Active Substance: TOCILIZUMAB
     Route: 042
     Dates: start: 20110610
  19. TOCILIZUMAB [Suspect]
     Active Substance: TOCILIZUMAB
     Route: 042
     Dates: start: 20111212

REACTIONS (2)
  - H1N1 influenza [Recovered/Resolved]
  - Asthmatic crisis [Recovered/Resolved]

NARRATIVE: CASE EVENT DATE: 20120411
